FAERS Safety Report 17017961 (Version 2)
Quarter: 2019Q4

REPORT INFORMATION
  Report Type: Report from Study
  Country: GB (occurrence: GB)
  Receive Date: 20191111
  Receipt Date: 20191212
  Transmission Date: 20200122
  Serious: Yes (Hospitalization)
  Sender: FDA-Public Use
  Company Number: NVSC2019GB025122

PATIENT
  Weight: 52.3 kg

DRUGS (2)
  1. TRAMETINIB [Suspect]
     Active Substance: TRAMETINIB
     Indication: NEOPLASM
     Dosage: 26 MG
     Route: 048
     Dates: start: 20191007, end: 20191020
  2. CGS 20267 [Suspect]
     Active Substance: LETROZOLE
     Indication: PRODUCT USED FOR UNKNOWN INDICATION
     Dosage: 1560 MG
     Route: 048
     Dates: start: 20171120, end: 20190806

REACTIONS (2)
  - Pain [Recovered/Resolved]
  - Haematuria [Recovered/Resolved]

NARRATIVE: CASE EVENT DATE: 20191021
